FAERS Safety Report 22643990 (Version 2)
Quarter: 2024Q1

REPORT INFORMATION
  Report Type: Spontaneous
  Country: US (occurrence: US)
  Receive Date: 20230627
  Receipt Date: 20240222
  Transmission Date: 20240410
  Serious: No
  Sender: FDA-Public Use
  Company Number: US-ELI_LILLY_AND_COMPANY-US202306014965

PATIENT
  Age: 56 Year
  Sex: Female

DRUGS (6)
  1. MOUNJARO [Suspect]
     Active Substance: TIRZEPATIDE
     Indication: Off label use
     Dosage: UNK UNK, UNKNOWN
     Route: 065
  2. MOUNJARO [Suspect]
     Active Substance: TIRZEPATIDE
     Indication: Off label use
     Dosage: 10 MG, UNKNOWN
     Route: 065
     Dates: start: 20230622
  3. MOUNJARO [Suspect]
     Active Substance: TIRZEPATIDE
     Indication: Off label use
     Dosage: 10 MG, UNKNOWN
     Route: 065
     Dates: start: 20230622
  4. MOUNJARO [Suspect]
     Active Substance: TIRZEPATIDE
     Indication: Off label use
     Dosage: 10 MG, UNKNOWN
     Route: 065
     Dates: start: 20230622
  5. MOUNJARO [Suspect]
     Active Substance: TIRZEPATIDE
     Indication: Off label use
     Dosage: 10 MG, UNKNOWN
     Route: 065
     Dates: start: 20230622
  6. MOUNJARO [Suspect]
     Active Substance: TIRZEPATIDE
     Indication: Off label use
     Dosage: 10 MG, UNKNOWN
     Route: 065
     Dates: start: 20230622

REACTIONS (2)
  - Off label use [Unknown]
  - Incorrect dose administered [Unknown]
